FAERS Safety Report 7803323 (Version 3)
Quarter: 2014Q1

REPORT INFORMATION
  Report Type: Spontaneous
  Country: US (occurrence: US)
  Receive Date: 20110208
  Receipt Date: 20140203
  Transmission Date: 20141002
  Serious: Yes (Other)
  Sender: FDA-Public Use
  Company Number: US-BAYER-2011-010789

PATIENT
  Age: 23 Year
  Sex: Female

DRUGS (1)
  1. MIRENA [Suspect]
     Indication: CONTRACEPTION
     Dosage: 20 MCG/24HR, CONT
     Route: 015
     Dates: start: 20081218, end: 20120608

REACTIONS (9)
  - Uterine perforation [None]
  - Pelvic inflammatory disease [Not Recovered/Not Resolved]
  - Chlamydial infection [None]
  - Emotional distress [None]
  - Device dislocation [None]
  - Gonorrhoea [None]
  - Abdominal pain [Not Recovered/Not Resolved]
  - Injury [None]
  - Pelvic pain [None]
